FAERS Safety Report 22022620 (Version 1)
Quarter: 2023Q1

REPORT INFORMATION
  Report Type: Report from Study
  Country: AT (occurrence: AT)
  Receive Date: 20230222
  Receipt Date: 20230222
  Transmission Date: 20230417
  Serious: Yes (Congenital Anomaly, Other)
  Sender: FDA-Public Use
  Company Number: None

PATIENT
  Age: 27 Year
  Sex: Female
  Weight: 49 kg

DRUGS (3)
  1. RINVOQ [Suspect]
     Active Substance: UPADACITINIB
     Indication: Product used for unknown indication
     Route: 050
     Dates: start: 202206
  2. PREGNAVIT [Concomitant]
     Indication: Product used for unknown indication
  3. Thrombo [Concomitant]
     Indication: Product used for unknown indication

REACTIONS (4)
  - Muscular dystrophy [Recovered/Resolved]
  - Maternal exposure during pregnancy [Unknown]
  - Skeletal dysplasia [Recovered/Resolved]
  - Abortion induced [Unknown]

NARRATIVE: CASE EVENT DATE: 20220717
